FAERS Safety Report 5769900-4 (Version None)
Quarter: 2008Q2

REPORT INFORMATION
  Report Type: 
  Country: None (occurrence: None)
  Receive Date: 20080613
  Receipt Date: 20080411
  Transmission Date: 20081010
  Serious: No
  Sender: FDA-Public Use
  Company Number: US-ABBOTT-08P-163-0447022-00

PATIENT
  Sex: Female
  Weight: 59.02 kg

DRUGS (3)
  1. HUMIRA [Suspect]
     Indication: CROHN'S DISEASE
     Dosage: DAY ONE
     Route: 058
     Dates: start: 20080410, end: 20080410
  2. HUMIRA [Suspect]
     Dosage: DAY 2
     Route: 058
     Dates: start: 20080411, end: 20080411
  3. HUMIRA [Suspect]

REACTIONS (2)
  - INJECTION SITE IRRITATION [None]
  - INJECTION SITE PAIN [None]
